FAERS Safety Report 19515533 (Version 1)
Quarter: 2021Q3

REPORT INFORMATION
  Report Type: Spontaneous
  Country: DE (occurrence: DE)
  Receive Date: 20210710
  Receipt Date: 20210710
  Transmission Date: 20211014
  Serious: Yes (Hospitalization)
  Sender: FDA-Public Use
  Company Number: NVSC2021DE145544

PATIENT
  Age: 77 Year
  Sex: Female

DRUGS (2)
  1. CLOPIDOGREL [Concomitant]
     Active Substance: CLOPIDOGREL BISULFATE
     Indication: PRODUCT USED FOR UNKNOWN INDICATION
     Dosage: 75 MG, QD (75 MG, 0?1?0?0, TABLETTEN)
     Route: 048
  2. METHYLPREDNISOLONE. [Suspect]
     Active Substance: METHYLPREDNISOLONE
     Indication: PRODUCT USED FOR UNKNOWN INDICATION
     Dosage: 4 MG, QD  (4 MG, 1?0?0?0, TABLETTEN)
     Route: 048

REACTIONS (5)
  - Faeces pale [Unknown]
  - Abdominal pain lower [Unknown]
  - Abdominal pain [Unknown]
  - Abdominal pain upper [Unknown]
  - Chromaturia [Unknown]
